FAERS Safety Report 18231962 (Version 1)
Quarter: 2020Q3

REPORT INFORMATION
  Report Type: Spontaneous
  Country: US (occurrence: US)
  Receive Date: 20200903
  Receipt Date: 20200903
  Transmission Date: 20201103
  Serious: Yes (Death)
  Sender: FDA-Public Use
  Company Number: None

PATIENT
  Age: 80 Year
  Sex: Male
  Weight: 69 kg

DRUGS (1)
  1. ENOXAPARIN [Suspect]
     Active Substance: ENOXAPARIN
     Indication: ATRIAL FIBRILLATION
     Route: 058
     Dates: start: 20200726, end: 20200813

REACTIONS (4)
  - Disseminated intravascular coagulation [None]
  - Mouth haemorrhage [None]
  - Renal impairment [None]
  - Cerebral haemorrhage [None]

NARRATIVE: CASE EVENT DATE: 20200815
